FAERS Safety Report 9092377 (Version 1)
Quarter: 2013Q1

REPORT INFORMATION
  Report Type: Spontaneous
  Country: US (occurrence: US)
  Receive Date: 20130131
  Receipt Date: 20130131
  Transmission Date: 20140127
  Serious: No
  Sender: FDA-Public Use
  Company Number: US-TEVA-382145USA

PATIENT
  Age: 49 Year
  Sex: Female
  Weight: 63.56 kg

DRUGS (2)
  1. PROAIR HFA [Suspect]
     Indication: DYSPNOEA
     Dosage: 2 PUFFS PRN
     Dates: start: 20130111, end: 20130113
  2. FLU VACCINE [Concomitant]
     Indication: ANTIVIRAL PROPHYLAXIS

REACTIONS (3)
  - Feeling hot [Recovered/Resolved]
  - Erythema [Recovered/Resolved]
  - Headache [Recovered/Resolved]
